FAERS Safety Report 17882201 (Version 2)
Quarter: 2020Q3

REPORT INFORMATION
  Report Type: Spontaneous
  Country: DE (occurrence: DE)
  Receive Date: 20200610
  Receipt Date: 20200910
  Transmission Date: 20201103
  Serious: Yes (Hospitalization, Other)
  Sender: FDA-Public Use
  Company Number: DE-MYLANLABS-2020M1055357

PATIENT
  Age: 57 Year
  Sex: Female

DRUGS (9)
  1. IBUPROFEN. [Concomitant]
     Active Substance: IBUPROFEN
     Indication: COUGH
     Dosage: UNK
  2. IBUPROFEN. [Concomitant]
     Active Substance: IBUPROFEN
     Indication: PYREXIA
     Dosage: UNK
  3. PREDNISOLONE. [Suspect]
     Active Substance: PREDNISOLONE
     Indication: RASH PRURITIC
     Dosage: UNK, BOLUS
     Route: 042
  4. AMOXICILLIN. [Suspect]
     Active Substance: AMOXICILLIN
     Indication: PYREXIA
     Dosage: UNK
  5. METAMIZOLE [Concomitant]
     Active Substance: METAMIZOLE
     Indication: PYREXIA
     Dosage: UNK
  6. AMOXICILLIN. [Suspect]
     Active Substance: AMOXICILLIN
     Indication: COUGH
     Dosage: UNK
  7. METAMIZOLE [Concomitant]
     Active Substance: METAMIZOLE
     Indication: COUGH
     Dosage: UNK
  8. PREDNISOLONE. [Suspect]
     Active Substance: PREDNISOLONE
     Indication: RASH MACULO-PAPULAR
     Dosage: 120 MG/KG, QD (1.5 MG PER KILOGRAM OF BODY WEIGHT)
  9. PREDNISOLONE. [Suspect]
     Active Substance: PREDNISOLONE
     Indication: VASCULITIS
     Dosage: UNK

REACTIONS (14)
  - Rash maculo-papular [Recovered/Resolved]
  - Fibrin D dimer increased [Recovered/Resolved]
  - Rash [Recovered/Resolved]
  - Skin reaction [Recovered/Resolved]
  - Rash pruritic [Recovered/Resolved]
  - Drug hypersensitivity [Unknown]
  - Thrombosis [Recovered/Resolved]
  - Skin lesion [Recovered/Resolved]
  - Pneumonia [Recovered/Resolved]
  - Purpura [Recovered/Resolved]
  - Rash macular [Recovered/Resolved]
  - Skin plaque [Recovered/Resolved]
  - Vasculitis [Unknown]
  - Drug ineffective [Unknown]
